FAERS Safety Report 21275281 (Version 1)
Quarter: 2022Q3

REPORT INFORMATION
  Report Type: Spontaneous
  Country: CN (occurrence: CN)
  Receive Date: 20220831
  Receipt Date: 20220831
  Transmission Date: 20221027
  Serious: Yes (Other)
  Sender: FDA-Public Use
  Company Number: CN-BAYER-2022A116836

PATIENT
  Age: 65 Month

DRUGS (3)
  1. KOVALTRY [Suspect]
     Active Substance: ANTIHEMOPHILIC FACTOR, HUMAN RECOMBINANT
     Indication: Factor VIII deficiency
     Dosage: 500 IU, QD
     Route: 040
     Dates: start: 20220704, end: 20220706
  2. KOVALTRY [Suspect]
     Active Substance: ANTIHEMOPHILIC FACTOR, HUMAN RECOMBINANT
     Indication: Factor VIII deficiency
     Dosage: 500 IU, QD
     Route: 040
     Dates: start: 20220709, end: 20220713
  3. KOVALTRY [Suspect]
     Active Substance: ANTIHEMOPHILIC FACTOR, HUMAN RECOMBINANT
     Indication: Factor VIII deficiency
     Dosage: 500 IU, Q8HR
     Route: 040
     Dates: start: 20220714, end: 20220716

REACTIONS (3)
  - Intestinal haemorrhage [None]
  - Anti factor VIII antibody positive [None]
  - Drug ineffective [None]

NARRATIVE: CASE EVENT DATE: 20220101
